FAERS Safety Report 8086038-4 (Version None)
Quarter: 2012Q1

REPORT INFORMATION
  Report Type: 
  Country: None (occurrence: None)
  Receive Date: 20120128
  Receipt Date: 20110607
  Transmission Date: 20120608
  Serious: No
  Sender: FDA-Public Use
  Company Number: US-ABBOTT-11P-163-0731547-00

PATIENT
  Sex: Female

DRUGS (10)
  1. LISINOPRIL [Concomitant]
     Indication: HYPERTENSION
  2. CLONAZEPAM [Concomitant]
     Indication: INSOMNIA
  3. PRAMITOL [Concomitant]
     Indication: RESTLESS LEGS SYNDROME
  4. HUMIRA [Suspect]
     Indication: CROHN'S DISEASE
     Dosage: ONE TIME INITIAL DOSE
     Dates: start: 20110514
  5. ATENOLOL [Concomitant]
     Indication: HYPERTENSION
  6. CYMBALTA [Concomitant]
     Indication: PAIN
  7. CYMBALTA [Concomitant]
     Indication: INSOMNIA
  8. RISPERDAL [Concomitant]
     Indication: INSOMNIA
  9. MS CONTIN [Concomitant]
     Indication: PAIN
  10. FLONASE [Concomitant]
     Indication: HYPERSENSITIVITY

REACTIONS (1)
  - INJECTION SITE PAIN [None]
